FAERS Safety Report 19773419 (Version 4)
Quarter: 2024Q2

REPORT INFORMATION
  Report Type: Report from Study
  Country: CA (occurrence: CA)
  Receive Date: 20210901
  Receipt Date: 20240503
  Transmission Date: 20240716
  Serious: Yes (Other)
  Sender: FDA-Public Use
  Company Number: CA-CELLTRION INC.-2021CA011572

PATIENT

DRUGS (35)
  1. RITUXIMAB [Suspect]
     Active Substance: RITUXIMAB
     Indication: Rheumatoid arthritis
     Dosage: 1000 MILLIGRAM
     Route: 042
  2. RITUXIMAB [Suspect]
     Active Substance: RITUXIMAB
     Indication: Cryoglobulinaemia
     Dosage: 1000 MILLIGRAM
     Route: 042
  3. RITUXIMAB [Suspect]
     Active Substance: RITUXIMAB
     Dosage: 1000 MILLIGRAM
     Route: 042
  4. RITUXIMAB [Suspect]
     Active Substance: RITUXIMAB
     Dosage: 1000 MILLIGRAM, 1 EVERY 6 MONTHS
     Route: 042
  5. RITUXIMAB [Suspect]
     Active Substance: RITUXIMAB
     Dosage: UNK
     Route: 042
  6. RITUXIMAB [Suspect]
     Active Substance: RITUXIMAB
     Dosage: UNK
     Route: 065
  7. RITUXIMAB [Suspect]
     Active Substance: RITUXIMAB
     Dosage: 1000 MG
     Route: 042
  8. BENADRYL [Concomitant]
     Active Substance: DIPHENHYDRAMINE HYDROCHLORIDE
     Indication: Premedication
     Dosage: 50 MILLIGRAM
     Route: 048
  9. CALCIUM CARBONATE [Concomitant]
     Active Substance: CALCIUM CARBONATE
     Indication: Osteoporosis
     Dosage: 500.0 MILLIGRAM, 2 EVERY 1 DAYS
     Route: 048
  10. FAMOTIDINE [Concomitant]
     Active Substance: FAMOTIDINE
     Indication: Ulcer
     Dosage: 20 MILLIGRAM, 2 EVERY 1 DAYS
     Route: 065
  11. FAMOTIDINE [Concomitant]
     Active Substance: FAMOTIDINE
     Dosage: 20 MILLIGRAM, 2 EVERY 1 DAYS
     Route: 065
  12. FUROSEMIDE [Concomitant]
     Active Substance: FUROSEMIDE
     Dosage: 20 MILLIGRAM, 1 EVERY 1 DAYS
     Route: 048
  13. FERROUS SULFATE ANHYDROUS [Concomitant]
     Active Substance: FERROUS SULFATE ANHYDROUS
     Dosage: 300 MILLIGRAM, 2 EVERY 1 DAYS
     Route: 048
  14. LUCENTIS [Concomitant]
     Active Substance: RANIBIZUMAB
     Dosage: 0.5 MILLIGRAM
     Route: 031
  15. LUCENTIS [Concomitant]
     Active Substance: RANIBIZUMAB
     Dosage: 0.5 MILLIGRAM
     Route: 031
  16. LUCENTIS [Concomitant]
     Active Substance: RANIBIZUMAB
     Dosage: 0.5 MG
     Route: 031
  17. POLYETHYLENE GLYCOL 3350 [Concomitant]
     Active Substance: POLYETHYLENE GLYCOL 3350
     Indication: Constipation
     Dosage: 17 GRAM, 1 EVERY 1 DAYS
     Route: 048
  18. PANTOPRAZOLE [Concomitant]
     Active Substance: PANTOPRAZOLE
     Indication: Ill-defined disorder
     Dosage: 40 MILLIGRAM, 2 EVERY 1 DAY
     Route: 048
  19. PEPCID [Concomitant]
     Active Substance: FAMOTIDINE
     Indication: Ulcer
     Dosage: 20 MILLIGRAM, 2 EVERY 1 DAY
     Route: 065
  20. PREGABALIN [Concomitant]
     Active Substance: PREGABALIN
     Dosage: 100 MILLIGRAM, 1 EVERY 1 DAY
     Route: 048
  21. PREGABALIN [Concomitant]
     Active Substance: PREGABALIN
     Dosage: 100 MILLIGRAM, 1 EVERY 1 DAY
     Route: 048
  22. PREGABALIN [Concomitant]
     Active Substance: PREGABALIN
     Dosage: 100 MG, 1 EVERY 1 DAY
     Route: 048
  23. ROSUVASTATIN [Concomitant]
     Active Substance: ROSUVASTATIN
     Indication: Blood cholesterol
     Dosage: 5 MILLIGRAM, 1 EVERY 1 DAY
     Route: 048
  24. IRBESARTAN [Concomitant]
     Active Substance: IRBESARTAN
     Indication: Hypertension
     Dosage: 75 MILLIGRAM, 1 EVERY 1 DAY
     Route: 048
  25. IRBESARTAN [Concomitant]
     Active Substance: IRBESARTAN
     Dosage: 75 MILLIGRAM, 1 EVERY 1 DAY
     Route: 048
  26. IRBESARTAN [Concomitant]
     Active Substance: IRBESARTAN
     Indication: Hypertension
     Dosage: 75 MG, 1 EVERY 1 DAY
     Route: 048
  27. SENNOSIDES [Concomitant]
     Active Substance: SENNOSIDES
     Indication: Constipation
     Dosage: 8.6 MILLIGRAM, 2 EVERY 1 DAY
     Route: 048
  28. SOLIRIS SINGLE USE, 300 MG/30ML [Concomitant]
     Dosage: 600 MILLIGRAM
     Route: 065
  29. SOLIRIS SINGLE USE, 300 MG/30ML [Concomitant]
     Dosage: 600 MILLIGRAM
     Route: 065
  30. SOLIRIS SINGLE USE, 300 MG/30ML [Concomitant]
     Dosage: 600 MILLIGRAM
     Route: 065
  31. SOLIRIS SINGLE USE, 300 MG/30ML [Concomitant]
     Dosage: 600 MG
     Route: 065
  32. SOLU-MEDROL [Concomitant]
     Active Substance: METHYLPREDNISOLONE SODIUM SUCCINATE
     Indication: Premedication
     Dosage: 100 MILLIGRAM
     Route: 042
  33. TYLENOL [Concomitant]
     Active Substance: ACETAMINOPHEN
     Indication: Premedication
     Dosage: 650 MILLIGRAM
     Route: 048
  34. GLYCOPYRRONIUM\INDACATEROL [Concomitant]
     Active Substance: GLYCOPYRRONIUM\INDACATEROL
     Dosage: UNK, 1 EVERY 1 DAY
  35. ZOPICLONE [Concomitant]
     Active Substance: ZOPICLONE
     Indication: Insomnia
     Dosage: 7.5 MILLIGRAM
     Route: 048

REACTIONS (10)
  - Bladder cancer [Unknown]
  - Bladder mass [Unknown]
  - Blood pressure diastolic abnormal [Unknown]
  - Blood pressure systolic increased [Unknown]
  - Heart rate decreased [Unknown]
  - Renal cancer [Unknown]
  - Ureteric cancer [Unknown]
  - Off label use [Unknown]
  - Intentional product use issue [Unknown]
  - Intentional product use issue [Unknown]
